FAERS Safety Report 12902110 (Version 1)
Quarter: 2016Q4

REPORT INFORMATION
  Report Type: Spontaneous
  Country: US (occurrence: US)
  Receive Date: 20161102
  Receipt Date: 20161102
  Transmission Date: 20170207
  Serious: No
  Sender: FDA-Public Use
  Company Number: US-PFIZER INC-2016506603

PATIENT
  Age: 77 Year
  Sex: Female

DRUGS (3)
  1. LYRICA [Suspect]
     Active Substance: PREGABALIN
  2. NEURONTIN [Suspect]
     Active Substance: GABAPENTIN
  3. TRAMADOL. [Suspect]
     Active Substance: TRAMADOL

REACTIONS (1)
  - Drug hypersensitivity [Unknown]
